FAERS Safety Report 5127517-9 (Version None)
Quarter: 2006Q4

REPORT INFORMATION
  Report Type: 
  Country: None (occurrence: None)
  Receive Date: 20061011
  Receipt Date: 20060928
  Transmission Date: 20070319
  Serious: Yes (Death)
  Sender: FDA-Public Use
  Company Number: 2006EU002707

PATIENT
  Age: 40 Year
  Sex: Female

DRUGS (6)
  1. PROGRAF [Suspect]
     Indication: RENAL TRANSPLANT
     Dosage: UNK,
     Dates: start: 20060714, end: 20060720
  2. CYMEVAN             (GANCICLOVIR SODIUM) [Suspect]
     Dosage: UNK, UNKNOWN/D, UNK
     Dates: start: 20060718, end: 20060719
  3. WELLVONE               (ATOVAQUONE) [Suspect]
     Dosage: UNK,
     Dates: start: 20060717, end: 20060724
  4. XIGRIS [Suspect]
     Dosage: UNK,
     Dates: start: 20060717, end: 20060719
  5. BACTRIM [Concomitant]
  6. IMUREL [Concomitant]

REACTIONS (12)
  - BRADYCARDIA [None]
  - BRAIN DEATH [None]
  - CARDIAC DISORDER [None]
  - HAEMODYNAMIC INSTABILITY [None]
  - HEPATIC FAILURE [None]
  - NERVOUS SYSTEM DISORDER [None]
  - PNEUMOCYSTIS JIROVECI PNEUMONIA [None]
  - RENAL FAILURE [None]
  - RESPIRATORY FAILURE [None]
  - RHABDOMYOLYSIS [None]
  - TACHYCARDIA [None]
  - VENTRICULAR ARRHYTHMIA [None]
